FAERS Safety Report 22167149 (Version 1)
Quarter: 2023Q1

REPORT INFORMATION
  Report Type: Spontaneous
  Country: US (occurrence: None)
  Receive Date: 20230331
  Receipt Date: 20230331
  Transmission Date: 20230418
  Serious: Yes (Hospitalization)
  Sender: FDA-Public Use
  Company Number: None

PATIENT
  Age: 74 Year
  Sex: Female

DRUGS (2)
  1. TADALAFIL [Suspect]
     Active Substance: TADALAFIL
     Indication: Pulmonary arterial hypertension
     Dosage: FREQUENCY : DAILY;?
     Route: 048
     Dates: start: 20221209
  2. UPTRAVI [Suspect]
     Active Substance: SELEXIPAG

REACTIONS (3)
  - Dizziness [None]
  - Loss of consciousness [None]
  - Blood pressure abnormal [None]

NARRATIVE: CASE EVENT DATE: 20230330
